FAERS Safety Report 9721810 (Version 1)
Quarter: 2013Q4

REPORT INFORMATION
  Report Type: Report from Study
  Country: US (occurrence: US)
  Receive Date: 20131201
  Receipt Date: 20131201
  Transmission Date: 20140711
  Serious: No
  Sender: FDA-Public Use
  Company Number: US-ABBVIE-13P-163-1155704-00

PATIENT
  Age: 39 Year
  Sex: Male

DRUGS (1)
  1. ANDROGEL [Suspect]
     Indication: PRODUCT USED FOR UNKNOWN INDICATION
     Dosage: 4 PUMPS TO EACH ARM DAILY
     Route: 061
     Dates: start: 201203

REACTIONS (2)
  - Application site exfoliation [Recovered/Resolved]
  - Application site dryness [Recovered/Resolved]
